FAERS Safety Report 5872135-8 (Version None)
Quarter: 2008Q3

REPORT INFORMATION
  Report Type: 
  Country: None (occurrence: None)
  Receive Date: 20080905
  Receipt Date: 20080828
  Transmission Date: 20090109
  Serious: Yes (Hospitalization, Other)
  Sender: FDA-Public Use
  Company Number: US-AMGEN-QUU297344

PATIENT
  Sex: Female
  Weight: 65.4 kg

DRUGS (22)
  1. ENBREL [Suspect]
     Indication: RHEUMATOID ARTHRITIS
     Route: 058
     Dates: start: 20060806
  2. METHOTREXATE [Concomitant]
     Route: 048
     Dates: start: 20060815, end: 20080801
  3. PLAQUENIL [Concomitant]
     Route: 048
     Dates: start: 20060815
  4. TRIAMCINOLONE [Concomitant]
  5. CELESTONE TAB [Concomitant]
  6. LIDOCAINE [Concomitant]
  7. ALLEGRA [Concomitant]
  8. COLACE [Concomitant]
  9. VYTORIN [Concomitant]
  10. NEURONTIN [Concomitant]
  11. FISH OIL [Concomitant]
  12. PROTONIX [Concomitant]
  13. CALTRATE [Concomitant]
  14. VITAMIN D [Concomitant]
  15. MULTI-VITAMINS [Concomitant]
  16. FOLIC ACID [Concomitant]
  17. PLAVIX [Concomitant]
  18. ASPIRIN [Concomitant]
  19. NASACORT [Concomitant]
     Route: 045
  20. PULMICORT-100 [Concomitant]
  21. LISINOPRIL [Concomitant]
  22. DARVOCET-N 100 [Concomitant]

REACTIONS (8)
  - ALOPECIA [None]
  - BACK PAIN [None]
  - DEEP VEIN THROMBOSIS POSTOPERATIVE [None]
  - DUPUYTREN'S CONTRACTURE [None]
  - FALL [None]
  - HERPES ZOSTER [None]
  - JOINT INJURY [None]
  - POST HERPETIC NEURALGIA [None]
